FAERS Safety Report 11251466 (Version 1)
Quarter: 2015Q3

REPORT INFORMATION
  Report Type: Spontaneous
  Country: US (occurrence: US)
  Receive Date: 20150708
  Receipt Date: 20150708
  Transmission Date: 20151125
  Serious: Yes (Other)
  Sender: FDA-Public Use
  Company Number: US-ELI_LILLY_AND_COMPANY-US201201005702

PATIENT
  Sex: Female
  Weight: 116.1 kg

DRUGS (1)
  1. GEMZAR [Suspect]
     Active Substance: GEMCITABINE HYDROCHLORIDE
     Indication: BILE DUCT CANCER
     Dosage: 1860 MG, DAY 1 AND 8 EVERY 21 DAYS
     Dates: start: 20110128, end: 20110325

REACTIONS (1)
  - Neoplasm progression [Not Recovered/Not Resolved]
